FAERS Safety Report 5708098-5 (Version None)
Quarter: 2008Q2

REPORT INFORMATION
  Report Type: 
  Country: None (occurrence: None)
  Receive Date: 20080414
  Receipt Date: 20080402
  Transmission Date: 20081010
  Serious: Yes (Hospitalization)
  Sender: FDA-Public Use
  Company Number: WAES 0804GBR00018

PATIENT
  Age: 82 Year
  Sex: Female

DRUGS (4)
  1. ORSU INDOCIN (INDOMETHACIN) (INDOMETHACIN) [Suspect]
     Dosage: PO
     Route: 048
  2. ARTHROTEC [Suspect]
     Indication: OSTEOARTHRITIS
     Dosage: 75 MG/BID
  3. POTASSIUM CHLORIDE [Suspect]
     Indication: CARDIAC FAILURE CONGESTIVE
     Dosage: 1200 MG/TID PO
     Route: 048
  4. FUROSEMIDE [Concomitant]

REACTIONS (5)
  - DEHYDRATION [None]
  - DUODENAL STENOSIS [None]
  - HAEMOGLOBIN DECREASED [None]
  - METABOLIC ALKALOSIS [None]
  - WEIGHT DECREASED [None]
